FAERS Safety Report 9109512 (Version 1)
Quarter: 2013Q1

REPORT INFORMATION
  Report Type: Spontaneous
  Country: PH (occurrence: PH)
  Receive Date: 20130222
  Receipt Date: 20130222
  Transmission Date: 20140127
  Serious: Yes (Hospitalization)
  Sender: FDA-Public Use
  Company Number: PHHY2013PH015301

PATIENT
  Age: 82 Year
  Sex: Male

DRUGS (7)
  1. EXELON [Suspect]
     Indication: DEMENTIA
     Dosage: 1.5 MG, QD
     Dates: start: 20130213
  2. ASPIRIN [Suspect]
     Indication: CEREBROVASCULAR ACCIDENT
     Dosage: 80 MG, DAILY
     Route: 048
     Dates: start: 20130213, end: 20130215
  3. PREDNISONE [Suspect]
     Indication: CHRONIC OBSTRUCTIVE PULMONARY DISEASE
     Dosage: 20 MG, DAILY
     Route: 048
     Dates: start: 20130210
  4. ENALAPRIL [Concomitant]
     Indication: HYPERTENSION
     Dosage: 5 MG, QD
     Dates: start: 20130210
  5. AMLODIPINE [Concomitant]
     Indication: HYPERTENSION
     Dosage: 10 MG, QD
     Dates: start: 20130210
  6. ROSUVASTATIN [Concomitant]
     Indication: DYSLIPIDAEMIA
     Dosage: 10 MG, QD
     Dates: start: 20130213
  7. IPRATROPIUM BR [Concomitant]
     Indication: CHRONIC OBSTRUCTIVE PULMONARY DISEASE
     Dosage: 2 PUFFS, BID
     Dates: start: 20130210

REACTIONS (2)
  - Haematochezia [Recovering/Resolving]
  - Melaena [Recovering/Resolving]
